FAERS Safety Report 12736263 (Version 1)
Quarter: 2016Q3

REPORT INFORMATION
  Report Type: Other
  Country: JP (occurrence: JP)
  Receive Date: 20160913
  Receipt Date: 20160913
  Transmission Date: 20161109
  Serious: Yes (Other)
  Sender: FDA-Public Use
  Company Number: JP-LUPIN PHARMACEUTICALS INC.-2016-04152

PATIENT
  Age: 46 Year
  Sex: Female

DRUGS (8)
  1. PAZOPANIB [Interacting]
     Active Substance: PAZOPANIB
     Indication: LEIOMYOSARCOMA
     Route: 048
  2. AMLODIPINE [Interacting]
     Active Substance: AMLODIPINE BESYLATE
     Route: 048
  3. AMLODIPINE [Suspect]
     Active Substance: AMLODIPINE BESYLATE
     Indication: BLOOD PRESSURE INCREASED
     Route: 048
  4. AMLODIPINE [Interacting]
     Active Substance: AMLODIPINE BESYLATE
     Route: 048
  5. AMLODIPINE [Interacting]
     Active Substance: AMLODIPINE BESYLATE
     Dosage: 5 MG
     Route: 048
  6. PAZOPANIB [Interacting]
     Active Substance: PAZOPANIB
     Route: 048
  7. PAZOPANIB [Interacting]
     Active Substance: PAZOPANIB
     Route: 048
  8. PAZOPANIB [Interacting]
     Active Substance: PAZOPANIB
     Route: 048

REACTIONS (4)
  - Blood pressure increased [Recovered/Resolved]
  - Neutropenia [Recovered/Resolved]
  - Thrombocytopenia [Unknown]
  - Drug interaction [Unknown]
